FAERS Safety Report 6308867-7 (Version None)
Quarter: 2009Q3

REPORT INFORMATION
  Report Type: 
  Country: None (occurrence: None)
  Receive Date: 20090813
  Receipt Date: 20090119
  Transmission Date: 20100115
  Serious: No
  Sender: FDA-Public Use
  Company Number: US-ALLERGAN-0900645US

PATIENT
  Age: 71 Year
  Sex: Female

DRUGS (4)
  1. COMBIGAN [Suspect]
     Indication: GLAUCOMA
     Dosage: 1 GTT, BID
     Route: 047
     Dates: start: 20090101
  2. RESTASIS [Concomitant]
     Indication: DRY EYE
  3. REFRESH PLUS [Concomitant]
     Indication: DRY EYE
  4. GENTEAL [Concomitant]

REACTIONS (4)
  - EYE IRRITATION [None]
  - EYE PRURITUS [None]
  - EYELID DISORDER [None]
  - EYELID MARGIN CRUSTING [None]
